FAERS Safety Report 12409390 (Version 1)
Quarter: 2016Q2

REPORT INFORMATION
  Report Type: Other
  Country: US (occurrence: US)
  Receive Date: 20160526
  Receipt Date: 20160526
  Transmission Date: 20160815
  Serious: Yes (Other)
  Sender: FDA-Public Use
  Company Number: US-COL_22951_2016

PATIENT
  Sex: Female

DRUGS (4)
  1. OMEPRAZOLE. [Concomitant]
     Active Substance: OMEPRAZOLE
     Indication: GASTROOESOPHAGEAL REFLUX DISEASE
     Dosage: NI/NI/
  2. COLGATE TOTAL WHITENING [Suspect]
     Active Substance: SILICON DIOXIDE\SODIUM FLUORIDE\TRICLOSAN
     Indication: DENTAL DISORDER PROPHYLAXIS
     Dosage: COVERS ALMOST THE WHOLE HEAD OF TOOTHBRUSH/THREE TIMES A DAY/
     Route: 048
  3. COLGATE TOTAL ADVANCED CLEAN [Suspect]
     Active Substance: SODIUM FLUORIDE\TRICLOSAN
     Indication: DENTAL DISORDER PROPHYLAXIS
     Dosage: COVERED WHOLE LENGTH OF HEAD OF TOOTHBRUSH/THREE TIMES A DAY/
     Route: 048
  4. COLGATE OPTIC WHITE - SPARKLING MINT [Suspect]
     Active Substance: SODIUM MONOFLUOROPHOSPHATE
     Indication: DENTAL DISORDER PROPHYLAXIS
     Dosage: COVERED WHOLE LENGTH OF HEAD OF TOOTHBRUSH/THREE TIMES A DAY/
     Route: 048

REACTIONS (3)
  - Gingivitis [Not Recovered/Not Resolved]
  - Adverse event [Recovered/Resolved]
  - Tooth fracture [Recovered/Resolved]

NARRATIVE: CASE EVENT DATE: 2015
